FAERS Safety Report 24144963 (Version 1)
Quarter: 2024Q3

REPORT INFORMATION
  Report Type: Spontaneous
  Country: US (occurrence: US)
  Receive Date: 20240729
  Receipt Date: 20240729
  Transmission Date: 20241017
  Serious: Yes (Hospitalization, Other)
  Sender: SANOFI AVENTIS
  Company Number: US-SA-SAC20240725001396

PATIENT
  Age: 61 Year
  Sex: Male

DRUGS (1)
  1. DUPIXENT [Suspect]
     Active Substance: DUPILUMAB
     Indication: Neurodermatitis
     Dosage: 300 MG, QOW
     Route: 058
     Dates: end: 202406

REACTIONS (7)
  - Colon cancer [Unknown]
  - Neurodermatitis [Recovering/Resolving]
  - Pain of skin [Not Recovered/Not Resolved]
  - Pruritus [Recovering/Resolving]
  - Skin irritation [Not Recovered/Not Resolved]
  - Scar [Not Recovered/Not Resolved]
  - Therapeutic response decreased [Unknown]
